FAERS Safety Report 9508460 (Version 2)
Quarter: 2013Q4

REPORT INFORMATION
  Report Type: Spontaneous
  Country: DE (occurrence: None)
  Receive Date: 20130905
  Receipt Date: 20131028
  Transmission Date: 20140711
  Serious: Yes (Hospitalization)
  Sender: FDA-Public Use
  Company Number: 1308-1104

PATIENT
  Age: 38 Year
  Sex: Male

DRUGS (1)
  1. EYLEA (AFLIBERCEPT) (INJECTION) (AFLIBERCEPT) [Suspect]
     Indication: RETINAL VEIN OCCLUSION
     Dates: start: 20130725, end: 20130725

REACTIONS (7)
  - Major depression [None]
  - Stress [None]
  - Diarrhoea [None]
  - Pollakiuria [None]
  - Apathy [None]
  - Fatigue [None]
  - Restlessness [None]
